FAERS Safety Report 25232817 (Version 12)
Quarter: 2025Q3

REPORT INFORMATION
  Report Type: Report from Study
  Country: CL (occurrence: CL)
  Receive Date: 20250424
  Receipt Date: 20250909
  Transmission Date: 20251021
  Serious: Yes (Hospitalization, Other)
  Sender: TAKEDA
  Company Number: CL-TAKEDA-2025TUS035134

PATIENT
  Age: 5 Year
  Sex: Male
  Weight: 24.8 kg

DRUGS (2)
  1. IDURSULFASE [Suspect]
     Active Substance: IDURSULFASE
     Indication: Enzyme supplementation
  2. IDURSULFASE [Suspect]
     Active Substance: IDURSULFASE
     Dosage: 0.5 MILLIGRAM/KILOGRAM, 1/WEEK

REACTIONS (22)
  - Epilepsy [Unknown]
  - Malaise [Unknown]
  - Brain neoplasm [Unknown]
  - Hydrocephalus [Unknown]
  - Cerebral ventricle dilatation [Unknown]
  - Bone neoplasm [Unknown]
  - Enlarged cerebral perivascular spaces [Unknown]
  - Leukoencephalopathy [Unknown]
  - Idiopathic intracranial hypertension [Unknown]
  - Diarrhoea [Unknown]
  - Pneumonia [Recovering/Resolving]
  - Discouragement [Recovering/Resolving]
  - Pain [Recovering/Resolving]
  - Nasopharyngitis [Recovering/Resolving]
  - Irritability [Not Recovered/Not Resolved]
  - Viral infection [Recovering/Resolving]
  - Gastroenteritis [Recovering/Resolving]
  - Respiratory syncytial virus infection [Recovered/Resolved]
  - Mucopolysaccharidosis [Unknown]
  - General physical health deterioration [Unknown]
  - Cough [Recovering/Resolving]
  - Pyrexia [Recovered/Resolved]

NARRATIVE: CASE EVENT DATE: 20250402
